FAERS Safety Report 10164334 (Version 1)
Quarter: 2014Q2

REPORT INFORMATION
  Report Type: Spontaneous
  Country: US (occurrence: US)
  Receive Date: 20140510
  Receipt Date: 20140510
  Transmission Date: 20141212
  Serious: No
  Sender: FDA-Public Use
  Company Number: US-BRISTOL-MYERS SQUIBB COMPANY-20057428

PATIENT
  Age: 66 Year
  Sex: Female
  Weight: 101.13 kg

DRUGS (4)
  1. BYDUREON [Suspect]
     Dates: start: 201306
  2. CRESTOR [Concomitant]
  3. METFORMIN [Concomitant]
  4. BENICAR [Concomitant]

REACTIONS (3)
  - Injection site nodule [Not Recovered/Not Resolved]
  - Nausea [Unknown]
  - Drug dose omission [Unknown]
